FAERS Safety Report 6451649-6 (Version None)
Quarter: 2009Q4

REPORT INFORMATION
  Report Type: 
  Country: None (occurrence: None)
  Receive Date: 20091118
  Receipt Date: 20090716
  Transmission Date: 20100525
  Serious: Yes (Other)
  Sender: FDA-Public Use
  Company Number: 2006BI018203

PATIENT
  Age: 71 Year
  Sex: Female

DRUGS (2)
  1. TYSABRI [Suspect]
     Indication: MULTIPLE SCLEROSIS
     Dosage: 300 MG;QM;IV
     Route: 042
     Dates: start: 20050218, end: 20061208
  2. HERBAL REMEDIES [Concomitant]

REACTIONS (3)
  - FATIGUE [None]
  - HYPERSENSITIVITY [None]
  - INFUSION RELATED REACTION [None]
